FAERS Safety Report 12401252 (Version 1)
Quarter: 2016Q2

REPORT INFORMATION
  Report Type: Spontaneous
  Country: US (occurrence: US)
  Receive Date: 20160525
  Receipt Date: 20160525
  Transmission Date: 20160815
  Serious: No
  Sender: FDA-Public Use
  Company Number: US-ELI_LILLY_AND_COMPANY-US201605005724

PATIENT
  Age: 32 Year
  Sex: Male

DRUGS (4)
  1. AXIRON [Suspect]
     Active Substance: TESTOSTERONE
     Indication: BLOOD TESTOSTERONE DECREASED
     Dosage: ONE PUMP DAILY TOO EACH ARMPIT (60 MG), QD
     Route: 061
  2. AXIRON [Suspect]
     Active Substance: TESTOSTERONE
     Dosage: ONE PUMP EVERY OTHER DAY
     Route: 061
  3. METHADONE HYDROCHLORIDE. [Concomitant]
     Active Substance: METHADONE HYDROCHLORIDE
     Indication: PRODUCT USED FOR UNKNOWN INDICATION
     Dosage: UNK
     Route: 065
  4. OXYCODONE [Concomitant]
     Active Substance: OXYCODONE
     Indication: PRODUCT USED FOR UNKNOWN INDICATION
     Dosage: UNK
     Route: 065

REACTIONS (2)
  - Intentional product misuse [Not Recovered/Not Resolved]
  - Breast tenderness [Not Recovered/Not Resolved]
